FAERS Safety Report 4867241-0 (Version None)
Quarter: 2005Q4

REPORT INFORMATION
  Report Type: 
  Country: None (occurrence: None)
  Receive Date: 20051227
  Receipt Date: 20051227
  Transmission Date: 20060501
  Serious: Yes (Hospitalization)
  Sender: FDA-Public Use
  Company Number: None

PATIENT
  Age: 53 Year
  Sex: Male
  Weight: 82.6 kg

DRUGS (11)
  1. BUPROPION 75MG TAB [Suspect]
  2. LORAZEPAM [Concomitant]
  3. OMEPRAZOLE [Concomitant]
  4. NAPROXEN [Concomitant]
  5. CYCLOBENZAPRINE HCL [Concomitant]
  6. BUSPIRONE [Concomitant]
  7. TRAMADOL HCL [Concomitant]
  8. MAGNESIUM HYDROXIDE TAB [Concomitant]
  9. ALOH/MGOH/SIMTH XTRA STRENGTH SUSP [Concomitant]
  10. ACETAMINOPHEN [Concomitant]
  11. ALBUTEROL 90/IPRATROPIUM [Concomitant]

REACTIONS (1)
  - ANXIETY [None]
